FAERS Safety Report 8170662-4 (Version None)
Quarter: 2012Q1

REPORT INFORMATION
  Report Type: 
  Country: None (occurrence: None)
  Receive Date: 20120106
  Receipt Date: 20101116
  Transmission Date: 20120608
  Serious: Yes (Life-Threatening)
  Sender: FDA-Public Use
  Company Number: US-005209

PATIENT
  Age: 63 Year
  Sex: Female
  Weight: 73 kg

DRUGS (8)
  1. ACTONEL [Concomitant]
  2. MULTIHANCE [Suspect]
     Indication: NUCLEAR MAGNETIC RESONANCE IMAGING BRAIN
     Dosage: 10ML ONCE INTRAVENOUS BOLUS
     Route: 040
     Dates: start: 20100914, end: 20100914
  3. MULTIHANCE [Suspect]
     Indication: HEMIPARESIS
     Dosage: 10ML ONCE INTRAVENOUS BOLUS
     Route: 040
     Dates: start: 20100914, end: 20100914
  4. MULTIHANCE [Suspect]
     Indication: AMNESIA
     Dosage: 10ML ONCE INTRAVENOUS BOLUS
     Route: 040
     Dates: start: 20100914, end: 20100914
  5. ENALAPRIL MALEATE [Concomitant]
  6. ASPIRIN [Concomitant]
  7. LEVOTHYROXINE SODIUM [Concomitant]
  8. CALCIUM CARBONATE [Concomitant]

REACTIONS (2)
  - CONVULSION [None]
  - ANAPHYLACTIC REACTION [None]
